FAERS Safety Report 5317701-3 (Version None)
Quarter: 2007Q2

REPORT INFORMATION
  Report Type: 
  Country: None (occurrence: None)
  Receive Date: 20070507
  Receipt Date: 20070427
  Transmission Date: 20071010
  Serious: Yes (Life-Threatening, Hospitalization)
  Sender: FDA-Public Use
  Company Number: PHEH2007US05838

PATIENT
  Age: 47 Year
  Sex: Male

DRUGS (2)
  1. LAMISIL [Suspect]
     Dosage: 250 MG, QD
     Route: 048
     Dates: start: 20070401, end: 20070412
  2. LAMISIL [Suspect]
     Dosage: UNK, UNK
     Route: 061
     Dates: start: 20070401, end: 20070412

REACTIONS (4)
  - BLOOD PRESSURE INCREASED [None]
  - EXFOLIATIVE RASH [None]
  - STEVENS-JOHNSON SYNDROME [None]
  - TREMOR [None]
